FAERS Safety Report 11321553 (Version 5)
Quarter: 2016Q1

REPORT INFORMATION
  Report Type: Spontaneous
  Country: US (occurrence: US)
  Receive Date: 20150729
  Receipt Date: 20160216
  Transmission Date: 20160525
  Serious: No
  Sender: FDA-Public Use
  Company Number: US-PFIZER INC-2015246659

PATIENT
  Age: 65 Year
  Sex: Female

DRUGS (3)
  1. IBRANCE [Suspect]
     Active Substance: PALBOCICLIB
     Dosage: 125 MG, UNK
     Dates: start: 20150717
  2. IBRANCE [Suspect]
     Active Substance: PALBOCICLIB
     Dosage: 125 MG, CYCLIC (21 DAYS OFF FOR 7 DAYS)
     Dates: start: 20150721
  3. LETROZOLE. [Suspect]
     Active Substance: LETROZOLE
     Dosage: 2.5 MG, DAILY

REACTIONS (5)
  - Nausea [Unknown]
  - Vomiting [Unknown]
  - Musculoskeletal pain [Unknown]
  - Blood count abnormal [Unknown]
  - Back injury [Unknown]

NARRATIVE: CASE EVENT DATE: 2015
